FAERS Safety Report 10193206 (Version 1)
Quarter: 2014Q2

REPORT INFORMATION
  Report Type: Spontaneous
  Country: US (occurrence: US)
  Receive Date: 20140524
  Receipt Date: 20140524
  Transmission Date: 20141212
  Serious: No
  Sender: FDA-Public Use
  Company Number: US-SA-2014SA011651

PATIENT
  Age: 62 Year
  Sex: Male
  Weight: 142.42 kg

DRUGS (7)
  1. LANTUS SOLOSTAR [Suspect]
     Indication: TYPE 2 DIABETES MELLITUS
     Dosage: 90 UNITS MORNING AND BED TIME DOSE:90 UNIT(S)
     Route: 058
     Dates: start: 20121023
  2. SOLOSTAR [Concomitant]
     Indication: TYPE 2 DIABETES MELLITUS
     Dosage: TAKEN FROM- 2 YEARS
     Dates: start: 20121023
  3. NORVASC [Concomitant]
     Indication: HYPERTENSION
     Dosage: 10 MG IN MORNING
     Route: 065
     Dates: start: 20070525
  4. COZAAR [Concomitant]
     Indication: BLOOD GLUCOSE INCREASED
     Route: 065
     Dates: start: 20060114
  5. NEURONTIN [Concomitant]
     Indication: NEUROPATHY PERIPHERAL
     Dosage: 300 MG IN MORNING AND 600 MG IN EVENING
     Route: 065
     Dates: start: 20130425
  6. AMARYL [Concomitant]
     Indication: BLOOD GLUCOSE ABNORMAL
     Dosage: 4 MG MORNING AND 4 MG EVENING
     Route: 065
     Dates: start: 20130528
  7. TOPROL XL [Concomitant]
     Dosage: 100 MG IN THE MORNING
     Route: 065

REACTIONS (6)
  - Rash [Not Recovered/Not Resolved]
  - Haemorrhage [Not Recovered/Not Resolved]
  - Skin exfoliation [Not Recovered/Not Resolved]
  - Erythema [Not Recovered/Not Resolved]
  - Rash erythematous [Not Recovered/Not Resolved]
  - Blood glucose increased [Unknown]
